FAERS Safety Report 8348802-3 (Version None)
Quarter: 2012Q2

REPORT INFORMATION
  Report Type: 
  Country: None (occurrence: None)
  Receive Date: 20120508
  Receipt Date: 20120426
  Transmission Date: 20120825
  Serious: Yes (Hospitalization)
  Sender: FDA-Public Use
  Company Number: DSU-2012-03407

PATIENT
  Age: 67 Year
  Sex: Female
  Weight: 55.7924 kg

DRUGS (6)
  1. VITAMIN D (ERGOCALCIFEROL) (ERGOCALCIFEROL) [Concomitant]
  2. CARAFATE [Suspect]
     Indication: GASTROOESOPHAGEAL REFLUX DISEASE
     Dosage: PER ORAL
     Route: 048
  3. BENICAR HCT [Suspect]
     Indication: HYPERTENSION
     Dosage: 20/12.5 MG (QD), PER ORAL, 20/12.5 MG (QD), PER ORAL
     Route: 048
     Dates: end: 20120418
  4. BENICAR HCT [Suspect]
     Indication: HYPERTENSION
     Dosage: 20/12.5 MG (QD), PER ORAL, 20/12.5 MG (QD), PER ORAL
     Route: 048
     Dates: start: 20120422, end: 20120425
  5. PROTONIX [Concomitant]
  6. CALCITRIOL (CALCITRIOL) (CALCITRIOL) [Concomitant]

REACTIONS (8)
  - PALPITATIONS [None]
  - BLOOD POTASSIUM DECREASED [None]
  - GASTROOESOPHAGEAL REFLUX DISEASE [None]
  - DRUG INTERACTION [None]
  - FEELING ABNORMAL [None]
  - HYPOTENSION [None]
  - DIZZINESS [None]
  - DEHYDRATION [None]
